FAERS Safety Report 10917457 (Version 1)
Quarter: 2015Q1

REPORT INFORMATION
  Report Type: Spontaneous
  Country: FR (occurrence: None)
  Receive Date: 20150311
  Receipt Date: 20150311
  Transmission Date: 20150721
  Serious: Yes (Other)
  Sender: FDA-Public Use
  Company Number: FK201501136

PATIENT
  Age: 6 Year
  Sex: Female

DRUGS (3)
  1. CORTICOSTEROIDS [Suspect]
     Active Substance: CORTICOSTEROID NOS
     Route: 048
  2. MERCAPTOPURINE (MANUFACTURER UNKNOWN) (MERCAPTOPURINE) (MERCAPTOPURINE)? [Suspect]
     Active Substance: MERCAPTOPURINE
     Indication: LANGERHANS^ CELL HISTIOCYTOSIS
  3. VINBLASTINE (MANUFACTURER UNKNOWN) (VINBLASTINE SULFATE) (VINBLASTINE SULFATE)? [Suspect]
     Active Substance: VINBLASTINE
     Indication: LANGERHANS^ CELL HISTIOCYTOSIS

REACTIONS (1)
  - Palmoplantar keratoderma [None]
